FAERS Safety Report 4884043-X (Version None)
Quarter: 2006Q1

REPORT INFORMATION
  Report Type: 
  Country: None (occurrence: None)
  Receive Date: 20060117
  Receipt Date: 20060109
  Transmission Date: 20060701
  Serious: Yes (Hospitalization)
  Sender: FDA-Public Use
  Company Number: 230156M05USA

PATIENT
  Age: 42 Year
  Sex: Female

DRUGS (15)
  1. REBIF [Suspect]
     Indication: MULTIPLE SCLEROSIS
     Dosage: SEE IMAGE
     Dates: start: 20050401, end: 20050101
  2. REBIF [Suspect]
     Indication: MULTIPLE SCLEROSIS
     Dosage: SEE IMAGE
     Dates: start: 20050516, end: 20050701
  3. REBIF [Suspect]
     Indication: MULTIPLE SCLEROSIS
     Dosage: SEE IMAGE
     Dates: start: 20050101
  4. AVELOX [Suspect]
  5. XANAX [Concomitant]
  6. GABAPENTIN [Concomitant]
  7. MEGESTROL ACETATE [Concomitant]
  8. CALCIUM (CALCIUM-SANDOZ) [Concomitant]
  9. WELLBUTRIN XL (BUPROPION) [Concomitant]
  10. QUESTRAN [Concomitant]
  11. METOPROLOL SUCCINATE (METOPROPOLOL SUCCINATE) [Concomitant]
  12. FERROUS SULFATE TAB [Concomitant]
  13. B COMPLEX VITAMINS (B-KOMPLEX) [Concomitant]
  14. FOSAMAX [Concomitant]
  15. LOVENOX [Concomitant]

REACTIONS (1)
  - CARDIOMYOPATHY [None]
